FAERS Safety Report 10348862 (Version 6)
Quarter: 2020Q3

REPORT INFORMATION
  Report Type: Report from Study
  Country: US (occurrence: US)
  Receive Date: 20140729
  Receipt Date: 20200731
  Transmission Date: 20201102
  Serious: Yes (Death, Life-Threatening, Hospitalization, Other)
  Sender: FDA-Public Use
  Company Number: US-PFIZER INC-2014204200

PATIENT
  Age: 70 Year
  Sex: Male
  Weight: 90.7 kg

DRUGS (14)
  1. ACIDOPHILUS [Concomitant]
     Active Substance: LACTOBACILLUS ACIDOPHILUS
     Indication: PROPHYLAXIS
     Dosage: UNK
     Route: 048
     Dates: start: 20020101
  2. ASPIRIN [ACETYLSALICYLIC ACID] [Concomitant]
     Active Substance: ASPIRIN
     Indication: PROPHYLAXIS
     Dosage: UNK
     Dates: start: 20110801
  3. BISMUTH. [Concomitant]
     Active Substance: BISMUTH
     Indication: FLATULENCE
  4. VITAMIN D [ERGOCALCIFEROL] [Concomitant]
     Active Substance: ERGOCALCIFEROL
     Indication: PROPHYLAXIS
     Dosage: UNK
     Dates: start: 20020101
  5. DEHYDROEPIANDROSTERONE [Concomitant]
     Active Substance: PRASTERONE
     Indication: PROPHYLAXIS
     Dosage: UNK
     Dates: start: 20020101
  6. MULTIVITAMINS [ASCORBIC ACID;ERGOCALCIFEROL;FOLIC ACID;NICOTINAMIDE;PA [Concomitant]
     Active Substance: VITAMINS
     Indication: PROPHYLAXIS
     Dosage: UNK
     Dates: start: 20020101
  7. KRILL OIL [FISH OIL] [Concomitant]
     Indication: PROPHYLAXIS
     Dosage: UNK
     Dates: start: 20120903
  8. MIDAZOLAM. [Concomitant]
     Active Substance: MIDAZOLAM
     Indication: SIGMOIDOSCOPY
     Dosage: UNK
     Dates: start: 20140715, end: 20140715
  9. LIALDA [Concomitant]
     Active Substance: MESALAMINE
     Dosage: UNK
     Dates: start: 20140720, end: 20140725
  10. BISMUTH. [Concomitant]
     Active Substance: BISMUTH
     Indication: DIARRHOEA
     Dosage: UNK
     Dates: start: 20120101
  11. FENTANYL. [Concomitant]
     Active Substance: FENTANYL
     Indication: SIGMOIDOSCOPY
     Dosage: UNK
     Dates: start: 20140715, end: 20140715
  12. LIALDA [Concomitant]
     Active Substance: MESALAMINE
     Indication: COLITIS ULCERATIVE
     Dosage: UNK
     Dates: start: 20110728
  13. CALCIUM WITH VITAMIN D [CALCIUM PHOSPHATE;CALCIUM SODIUM LACTATE;ERGOC [Concomitant]
     Indication: PROPHYLAXIS
     Dosage: UNK
     Dates: start: 20020101
  14. TOFACITINIB CITRATE [Suspect]
     Active Substance: TOFACITINIB CITRATE
     Indication: COLITIS ULCERATIVE
     Dosage: 10 MG, 2X/DAY
     Route: 048
     Dates: start: 20121112, end: 20140720

REACTIONS (3)
  - Pulmonary embolism [Fatal]
  - Cholangiocarcinoma [Not Recovered/Not Resolved]
  - Metastases to peritoneum [Not Recovered/Not Resolved]

NARRATIVE: CASE EVENT DATE: 20140710
